FAERS Safety Report 10618633 (Version 1)
Quarter: 2014Q4

REPORT INFORMATION
  Report Type: Spontaneous
  Country: IL (occurrence: None)
  Receive Date: 20141124
  Receipt Date: 20141124
  Transmission Date: 20150529
  Serious: Yes (Hospitalization)
  Sender: FDA-Public Use
  Company Number: IL-ZYDUS-005535

PATIENT
  Age: 34 Year
  Sex: Male

DRUGS (3)
  1. CLONAZEPAM. [Suspect]
     Active Substance: CLONAZEPAM
     Indication: AFFECTIVE DISORDER
  2. ESCITALOPRAM [Suspect]
     Active Substance: ESCITALOPRAM OXALATE
     Indication: AFFECTIVE DISORDER
     Dosage: 1.0 DAYS
  3. CARBAMAZEPINE (CARBAMAZEPINE) [Concomitant]
     Active Substance: CARBAMAZEPINE

REACTIONS (1)
  - Bruxism [None]
